FAERS Safety Report 14264166 (Version 1)
Quarter: 2017Q4

REPORT INFORMATION
  Report Type: Spontaneous
  Country: CA (occurrence: CA)
  Receive Date: 20171208
  Receipt Date: 20171208
  Transmission Date: 20180321
  Serious: Yes (Death, Other)
  Sender: FDA-Public Use
  Company Number: CA-PURDUE-CAN-2017-0008189

PATIENT
  Age: 75 Year
  Sex: Male
  Weight: 68 kg

DRUGS (12)
  1. PIRFENIDONE. [Suspect]
     Active Substance: PIRFENIDONE
     Indication: IDIOPATHIC PULMONARY FIBROSIS
     Dosage: 801.0 MG, TID
     Route: 048
  2. PIRFENIDONE. [Suspect]
     Active Substance: PIRFENIDONE
     Dosage: UNK
     Route: 048
  3. PIRFENIDONE. [Suspect]
     Active Substance: PIRFENIDONE
     Dosage: 267.0 MG, TID (DURATION 260.0)
     Route: 048
  4. ROSUVASTATIN. [Concomitant]
     Active Substance: ROSUVASTATIN
     Dosage: 20 MG, UNK
  5. PIRFENIDONE. [Suspect]
     Active Substance: PIRFENIDONE
     Dosage: 534.0 MG, TID
     Route: 048
  6. ALLOPURINOL. [Concomitant]
     Active Substance: ALLOPURINOL
     Dosage: 200 MG, UNK
  7. ACETYLSALICYLIC ACID [Concomitant]
     Active Substance: ASPIRIN
     Dosage: 81 MG, UNK
  8. METFORMIN [Concomitant]
     Active Substance: METFORMIN HYDROCHLORIDE
     Dosage: 500 MG, UNK
  9. MORPHINE SULFATE. [Suspect]
     Active Substance: MORPHINE SULFATE
     Indication: COUGH
     Dosage: 1 MG, QID
     Route: 065
  10. OXYGEN. [Concomitant]
     Active Substance: OXYGEN
     Dosage: UNK
  11. BISOPROLOL [Concomitant]
     Active Substance: BISOPROLOL
     Dosage: 5 MG, UNK
  12. RABEPRAZOLE [Concomitant]
     Active Substance: RABEPRAZOLE
     Dosage: 10 MG, UNK

REACTIONS (13)
  - Nausea [Fatal]
  - Pulmonary function test abnormal [Fatal]
  - Death [Fatal]
  - Frustration tolerance decreased [Fatal]
  - Malaise [Fatal]
  - Asthenia [Fatal]
  - Constipation [Fatal]
  - Decreased appetite [Fatal]
  - Gait disturbance [Fatal]
  - Cough [Fatal]
  - Dyspnoea [Fatal]
  - Fatigue [Fatal]
  - Tooth infection [Fatal]
